FAERS Safety Report 9580982 (Version 1)
Quarter: 2013Q4

REPORT INFORMATION
  Report Type: Spontaneous
  Country: US (occurrence: None)
  Receive Date: 20131001
  Receipt Date: 20131001
  Transmission Date: 20140711
  Serious: No
  Sender: FDA-Public Use
  Company Number: None

PATIENT
  Age: 46 Year
  Sex: Male
  Weight: 100.7 kg

DRUGS (1)
  1. CIALIS [Suspect]
     Route: 048
     Dates: start: 20130914, end: 20131018

REACTIONS (4)
  - Myalgia [None]
  - Muscle spasms [None]
  - Back pain [None]
  - Discomfort [None]
